FAERS Safety Report 7512356-1 (Version None)
Quarter: 2011Q2

REPORT INFORMATION
  Report Type: 
  Country: None (occurrence: None)
  Receive Date: 20110531
  Receipt Date: 20110524
  Transmission Date: 20111010
  Serious: Yes (Other)
  Sender: FDA-Public Use
  Company Number: US-ROCHE-719371

PATIENT
  Sex: Female

DRUGS (2)
  1. COPEGUS [Suspect]
     Indication: HEPATITIS C
     Dosage: FORM: PILLS; DIVIDED DOSES
     Route: 048
     Dates: start: 20100614, end: 20110509
  2. PEGASYS [Suspect]
     Indication: HEPATITIS C
     Dosage: FORM: PRE-FILLED SYRINGE.
     Route: 058
     Dates: start: 20100614, end: 20110509

REACTIONS (27)
  - BRONCHITIS [None]
  - OROPHARYNGEAL BLISTERING [None]
  - BLOOD CREATININE INCREASED [None]
  - RIB FRACTURE [None]
  - ANAEMIA [None]
  - FATIGUE [None]
  - RENAL FAILURE [None]
  - STOMATITIS [None]
  - WHITE BLOOD CELL COUNT DECREASED [None]
  - VERTIGO [None]
  - ILL-DEFINED DISORDER [None]
  - DECREASED APPETITE [None]
  - BLOOD POTASSIUM INCREASED [None]
  - RED BLOOD CELL COUNT DECREASED [None]
  - SERUM FERRITIN INCREASED [None]
  - WEIGHT DECREASED [None]
  - CARBON DIOXIDE INCREASED [None]
  - VOMITING [None]
  - HEADACHE [None]
  - BONE MARROW FAILURE [None]
  - HAEMATOCRIT DECREASED [None]
  - NAUSEA [None]
  - DEHYDRATION [None]
  - AMMONIA INCREASED [None]
  - AUTOIMMUNE DISORDER [None]
  - HAEMOGLOBIN DECREASED [None]
  - DIARRHOEA [None]
